FAERS Safety Report 12821694 (Version 1)
Quarter: 2016Q4

REPORT INFORMATION
  Report Type: Spontaneous
  Country: CH (occurrence: CH)
  Receive Date: 20161007
  Receipt Date: 20161007
  Transmission Date: 20170207
  Serious: Yes (Hospitalization, Other)
  Sender: FDA-Public Use
  Company Number: CH-AMGEN-CHESP2016133717

PATIENT
  Age: 74 Year
  Sex: Female
  Weight: 56.2 kg

DRUGS (5)
  1. FERRUM HAUSMANN [Concomitant]
     Active Substance: FERROUS FUMARATE
     Dosage: UNK UNK, QD
  2. PRAVASTATIN MEPHA [Concomitant]
     Dosage: 20 MG, QD
  3. PROLIA [Suspect]
     Active Substance: DENOSUMAB
     Indication: OSTEOPOROSIS
     Dosage: 60 MG, Q6MO
     Route: 058
     Dates: start: 201109
  4. FEMARA [Suspect]
     Active Substance: LETROZOLE
     Indication: BREAST CANCER
     Dosage: 2.5 MG, QD
     Route: 048
     Dates: start: 2011, end: 2016
  5. CALCIMAGON D3 [Concomitant]
     Active Substance: CALCIUM\CHOLECALCIFEROL
     Dosage: UNK UNK, QD
     Route: 048

REACTIONS (4)
  - Rebound effect [Not Recovered/Not Resolved]
  - Lumbar vertebral fracture [Unknown]
  - Thoracic vertebral fracture [Unknown]
  - Bone density decreased [Not Recovered/Not Resolved]

NARRATIVE: CASE EVENT DATE: 2016
